FAERS Safety Report 8502329 (Version 6)
Quarter: 2013Q3

REPORT INFORMATION
  Report Type: Spontaneous
  Country: NL (occurrence: NL)
  Receive Date: 20120410
  Receipt Date: 20130712
  Transmission Date: 20140515
  Serious: Yes (Hospitalization)
  Sender: FDA-Public Use
  Company Number: NL-ROCHE-1054582

PATIENT
  Age: 43 Year
  Sex: Female
  Weight: 90 kg

DRUGS (4)
  1. AVASTIN [Suspect]
     Indication: BREAST CANCER METASTATIC
     Route: 042
     Dates: start: 20120126
  2. PACLITAXEL [Suspect]
     Indication: BREAST CANCER METASTATIC
     Route: 065
  3. NAPROXEN [Concomitant]
  4. DEXAMETHASONE [Concomitant]

REACTIONS (7)
  - Ejection fraction decreased [Recovering/Resolving]
  - Heart valve incompetence [Recovering/Resolving]
  - Diarrhoea [Recovered/Resolved]
  - Pyrexia [Recovered/Resolved]
  - Influenza [Recovered/Resolved]
  - Pleurisy [Unknown]
  - Cardiomyopathy [Unknown]
